FAERS Safety Report 7377823-2 (Version None)
Quarter: 2011Q1

REPORT INFORMATION
  Report Type: 
  Country: None (occurrence: None)
  Receive Date: 20110328
  Receipt Date: 20110314
  Transmission Date: 20110831
  Serious: Yes (Other)
  Sender: FDA-Public Use
  Company Number: FR-CELGENEUS-056-50794-11031699

PATIENT
  Age: 57 Year

DRUGS (2)
  1. REVLIMID [Suspect]
     Dosage: X D1-D21
     Route: 048
  2. VIDAZA [Suspect]
     Dosage: 75 MILLIGRAM/SQ. METER
     Route: 065

REACTIONS (1)
  - CHRONIC GRAFT VERSUS HOST DISEASE [None]
